FAERS Safety Report 24213128 (Version 2)
Quarter: 2024Q3

REPORT INFORMATION
  Report Type: Other
  Country: GB (occurrence: GB)
  Receive Date: 20240815
  Receipt Date: 20240817
  Transmission Date: 20241016
  Serious: Yes (Other)
  Sender: NOVA LABORATORIES
  Company Number: GB-Nova Laboratories Limited-2160496

PATIENT

DRUGS (1)
  1. PURIXAN [Suspect]
     Active Substance: MERCAPTOPURINE
     Indication: Inflammatory bowel disease

REACTIONS (3)
  - Myelosuppression [Unknown]
  - Off label use [Unknown]
  - Gastrointestinal disorder [Unknown]
